FAERS Safety Report 17568097 (Version 1)
Quarter: 2020Q1

REPORT INFORMATION
  Report Type: Spontaneous
  Country: CA (occurrence: CA)
  Receive Date: 20200320
  Receipt Date: 20200320
  Transmission Date: 20200409
  Serious: Yes (Other)
  Sender: FDA-Public Use
  Company Number: NVSC2020CA078477

PATIENT
  Age: 44 Year
  Sex: Female

DRUGS (4)
  1. OCTREOTIDE ACETATE. [Suspect]
     Active Substance: OCTREOTIDE ACETATE
     Indication: CARCINOID TUMOUR OF THE APPENDIX
     Dosage: 50 UG (SOLUTION INTRAVENOUS)
     Route: 058
  2. SANDOSTATIN LAR DEPOT [Suspect]
     Active Substance: OCTREOTIDE ACETATE
     Indication: CARCINOID TUMOUR OF THE APPENDIX
     Dosage: 10 MG, Q4W
     Route: 030
  3. SANDOSTATIN LAR DEPOT [Suspect]
     Active Substance: OCTREOTIDE ACETATE
     Dosage: 10 MG, QMO
     Route: 030
  4. SANDOSTATIN [Suspect]
     Active Substance: OCTREOTIDE ACETATE
     Indication: CARCINOID TUMOUR OF THE APPENDIX
     Dosage: 50 UG (SOLUTION INTRAVENOUS)
     Route: 058

REACTIONS (8)
  - Injection site mass [Unknown]
  - Injection site warmth [Unknown]
  - Fatigue [Unknown]
  - Injection site pain [Unknown]
  - Stress [Unknown]
  - Injection site induration [Unknown]
  - Blood pressure increased [Unknown]
  - Insomnia [Unknown]
